FAERS Safety Report 5110291-X (Version None)
Quarter: 2006Q3

REPORT INFORMATION
  Report Type: 
  Country: None (occurrence: None)
  Receive Date: 20060921
  Receipt Date: 20060911
  Transmission Date: 20061208
  Serious: Yes (Other)
  Sender: FDA-Public Use
  Company Number: US-ROCHE-462943

PATIENT

DRUGS (1)
  1. ROCEPHIN [Suspect]
     Indication: ROCKY MOUNTAIN SPOTTED FEVER
     Route: 065

REACTIONS (3)
  - MULTI-ORGAN FAILURE [None]
  - PYREXIA [None]
  - VASCULITIS [None]
